FAERS Safety Report 9528199 (Version 1)
Quarter: 2013Q3

REPORT INFORMATION
  Report Type: Spontaneous
  Country: FR (occurrence: FR)
  Receive Date: 20130917
  Receipt Date: 20130917
  Transmission Date: 20140515
  Serious: Yes (Death)
  Sender: FDA-Public Use
  Company Number: PHHY2013FR102670

PATIENT
  Age: 69 Year
  Sex: Male

DRUGS (6)
  1. ACLASTA [Suspect]
     Dosage: 5 MG, ONCE
     Route: 042
     Dates: start: 20100421
  2. PREVISCAN [Concomitant]
  3. SOTALEX [Concomitant]
  4. OROCAL [Concomitant]
  5. INEXIUM//ESOMEPRAZOLE MAGNESIUM [Concomitant]
  6. SOLUPRED [Concomitant]

REACTIONS (1)
  - Death [Fatal]
